FAERS Safety Report 24611789 (Version 1)
Quarter: 2024Q4

REPORT INFORMATION
  Report Type: Spontaneous
  Country: US (occurrence: US)
  Receive Date: 20241113
  Receipt Date: 20241113
  Transmission Date: 20250115
  Serious: No
  Sender: ROCHE
  Company Number: US-ROCHE-10000124730

PATIENT
  Sex: Female

DRUGS (15)
  1. ERIVEDGE [Suspect]
     Active Substance: VISMODEGIB
     Indication: Basal cell carcinoma
     Route: 048
     Dates: start: 20241028
  2. AMLODIPINE B TAB [Concomitant]
  3. ASPIR LOW TBE [Concomitant]
  4. ATORVASTATIN [Concomitant]
     Active Substance: ATORVASTATIN
  5. CARBAMAZEPINE TAB [Concomitant]
  6. CEROVITE SEN TAB [Concomitant]
  7. DONEPEZIL HC TAB [Concomitant]
  8. KEPRA TAB [Concomitant]
  9. LEVOCARNITINE [Concomitant]
     Active Substance: LEVOCARNITINE
  10. LEVOTHYROXINE [Concomitant]
     Active Substance: LEVOTHYROXINE
  11. METOPROLOL [Concomitant]
     Active Substance: METOPROLOL
  12. NAMENDA [Concomitant]
     Active Substance: MEMANTINE HYDROCHLORIDE
  13. OMEPRAZOLE [Concomitant]
     Active Substance: OMEPRAZOLE
  14. RALOXIFENE [Concomitant]
     Active Substance: RALOXIFENE
  15. VITAMIN D3 [Concomitant]
     Active Substance: CHOLECALCIFEROL

REACTIONS (1)
  - Dysphagia [Unknown]
